FAERS Safety Report 8287966-7 (Version None)
Quarter: 2012Q2

REPORT INFORMATION
  Report Type: 
  Country: None (occurrence: None)
  Receive Date: 20120416
  Receipt Date: 20120402
  Transmission Date: 20120825
  Serious: Yes (Death)
  Sender: FDA-Public Use
  Company Number: CH-CELGENEUS-151-21660-12040037

PATIENT
  Sex: Female
  Weight: 45 kg

DRUGS (2)
  1. GEMCITABINE [Suspect]
     Dates: end: 20120326
  2. ABRAXANE [Suspect]
     Route: 041
     Dates: end: 20120326

REACTIONS (1)
  - PNEUMONIA [None]
